FAERS Safety Report 24090792 (Version 1)
Quarter: 2024Q3

REPORT INFORMATION
  Report Type: Spontaneous
  Country: CN (occurrence: CN)
  Receive Date: 20240715
  Receipt Date: 20240715
  Transmission Date: 20241016
  Serious: Yes (Death)
  Sender: SANDOZ
  Company Number: CN-SANDOZ-SDZ2024CN064025

PATIENT
  Age: 74 Year
  Sex: Male

DRUGS (1)
  1. VORICONAZOLE [Suspect]
     Active Substance: VORICONAZOLE
     Indication: Trichosporon infection
     Route: 065

REACTIONS (1)
  - Drug ineffective [Fatal]
